FAERS Safety Report 4382999-5 (Version None)
Quarter: 2004Q2

REPORT INFORMATION
  Report Type: 
  Country: None (occurrence: None)
  Receive Date: 20040528
  Receipt Date: 20030429
  Transmission Date: 20050107
  Serious: No
  Sender: FDA-Public Use
  Company Number: TAP2003Q00391

PATIENT
  Age: 44 Year
  Sex: Female
  Weight: 63.5036 kg

DRUGS (4)
  1. LUPRON DEPOT-3 [Suspect]
     Indication: HAEMORRHAGE
     Dosage: 3.75 MG, 1 IN 1 M, INTRAMUSCULAR
     Route: 030
     Dates: start: 20011002, end: 20011130
  2. LUPRON DEPOT-3 [Suspect]
     Indication: UTERINE LEIOMYOMA
     Dosage: 3.75 MG, 1 IN 1 M, INTRAMUSCULAR
     Route: 030
     Dates: start: 20011002, end: 20011130
  3. THYROXIN (LEVOTHYROXINE SODIUM) [Concomitant]
  4. B12 (CYANOCOBALAMIN) [Concomitant]

REACTIONS (15)
  - AFFECT LABILITY [None]
  - ANOREXIA [None]
  - ARTHRALGIA [None]
  - CONDITION AGGRAVATED [None]
  - DYSGEUSIA [None]
  - GINGIVITIS [None]
  - HOT FLUSH [None]
  - INSOMNIA [None]
  - MIGRAINE [None]
  - MYALGIA [None]
  - NAUSEA [None]
  - SCIATICA [None]
  - SPINAL FRACTURE [None]
  - STOMATITIS [None]
  - VISION BLURRED [None]
